FAERS Safety Report 4735609-9 (Version None)
Quarter: 2005Q3

REPORT INFORMATION
  Report Type: 
  Country: None (occurrence: None)
  Receive Date: 20050805
  Receipt Date: 20050720
  Transmission Date: 20060218
  Serious: No
  Sender: FDA-Public Use
  Company Number: GB-SANOFI-SYNTHELABO-A01200505055

PATIENT
  Sex: Female

DRUGS (6)
  1. PLAVIX [Suspect]
     Indication: STENT PLACEMENT
     Route: 048
     Dates: start: 20050701
  2. PLAVIX [Suspect]
     Indication: MYOCARDIAL INFARCTION
     Route: 048
     Dates: start: 20050701
  3. ASPIRIN [Concomitant]
     Indication: STENT PLACEMENT
     Route: 048
     Dates: start: 20050701
  4. ASPIRIN [Concomitant]
     Indication: MYOCARDIAL INFARCTION
     Route: 048
     Dates: start: 20050701
  5. ATENOLOL [Concomitant]
     Indication: STENT PLACEMENT
     Route: 048
     Dates: start: 20050701
  6. ATENOLOL [Concomitant]
     Indication: MYOCARDIAL INFARCTION
     Route: 048
     Dates: start: 20050701

REACTIONS (2)
  - CARDIAC DISORDER [None]
  - DRUG EXPOSURE DURING PREGNANCY [None]
